FAERS Safety Report 17521267 (Version 2)
Quarter: 2020Q2

REPORT INFORMATION
  Report Type: Spontaneous
  Country: US (occurrence: US)
  Receive Date: 20200310
  Receipt Date: 20200608
  Transmission Date: 20200713
  Serious: Yes (Other)
  Sender: FDA-Public Use
  Company Number: US-MYLANLABS-2020M1024802

PATIENT
  Age: 64 Year
  Sex: Female

DRUGS (6)
  1. HYDROCHLOROTHIAZIDE/VALSARTAN [Suspect]
     Active Substance: HYDROCHLOROTHIAZIDE\VALSARTAN
     Indication: HYPERTENSION
     Dosage: UNK
     Dates: start: 201301, end: 201501
  2. BENICAR [Concomitant]
     Active Substance: OLMESARTAN MEDOXOMIL
     Indication: HYPERTENSION
     Dosage: 40-25 MG
     Dates: start: 2008, end: 2010
  3. NAPROXEN. [Concomitant]
     Active Substance: NAPROXEN
     Indication: ARTHRALGIA
     Dosage: 500 MILLIGRAM
     Dates: start: 2010, end: 2017
  4. RANITIDINE. [Concomitant]
     Active Substance: RANITIDINE
     Indication: DYSPEPSIA
     Dosage: 150 MILLIGRAM
     Dates: start: 2012, end: 2019
  5. METOPROLOL. [Concomitant]
     Active Substance: METOPROLOL
     Indication: HYPERTENSION
     Dosage: 100 MILLIGRAM
     Dates: start: 2008
  6. OMEPRAZOLE. [Concomitant]
     Active Substance: OMEPRAZOLE
     Indication: DYSPEPSIA
     Dosage: 20 MILLIGRAM
     Dates: start: 2012, end: 2016

REACTIONS (1)
  - Chronic myeloid leukaemia [Unknown]

NARRATIVE: CASE EVENT DATE: 20180412
